FAERS Safety Report 6633273-5 (Version None)
Quarter: 2010Q1

REPORT INFORMATION
  Report Type: 
  Country: None (occurrence: None)
  Receive Date: 20100312
  Receipt Date: 20100309
  Transmission Date: 20100710
  Serious: Yes (Death)
  Sender: FDA-Public Use
  Company Number: PL-PFIZER INC-2010030070

PATIENT
  Age: 70 Year
  Sex: Male
  Weight: 115.6 kg

DRUGS (10)
  1. PREDNISONE [Suspect]
     Indication: PROSTATE CANCER
     Dosage: UNK
     Route: 048
     Dates: end: 20100307
  2. BLINDED *NO SUBJECT DRUG [Suspect]
     Indication: PROSTATE CANCER
     Dosage: 1X/DAILY
     Route: 048
     Dates: end: 20100307
  3. BLINDED *PLACEBO [Suspect]
     Indication: PROSTATE CANCER
     Dosage: 1X/DAILY
     Route: 048
     Dates: end: 20100307
  4. BLINDED SUNITINIB MALATE [Suspect]
     Indication: PROSTATE CANCER
     Dosage: 1X/DAILY
     Route: 048
     Dates: end: 20100307
  5. FUROSEMID [Concomitant]
     Dosage: UNK
     Dates: start: 20090101
  6. KALDYUM [Concomitant]
     Dosage: UNK
     Dates: start: 20090101
  7. SPIRONOL [Concomitant]
     Dosage: UNK
     Dates: start: 20090101
  8. THEOSPIREX [Concomitant]
     Dosage: UNK
     Dates: start: 20090101
  9. POLPRAZOL [Concomitant]
     Dosage: UNK
     Dates: start: 20100101
  10. LOPERAMIDE HYDROCHLORIDE [Concomitant]
     Dosage: UNK
     Dates: start: 20100101

REACTIONS (1)
  - DEATH [None]
